FAERS Safety Report 4512260-7 (Version None)
Quarter: 2004Q4

REPORT INFORMATION
  Report Type: 
  Country: None (occurrence: None)
  Receive Date: 20041123
  Receipt Date: 20041111
  Transmission Date: 20050328
  Serious: Yes (Other)
  Sender: FDA-Public Use
  Company Number: 210500

PATIENT
  Age: 48 Year
  Sex: Male

DRUGS (6)
  1. RITUXAN [Suspect]
     Indication: LYMPHOMA
     Dosage: 700 MG, INTRAVENOUS
     Route: 042
     Dates: start: 20040426, end: 20040810
  2. DEXAMETHASONE [Suspect]
     Indication: LYMPHOMA
     Dosage: 40 MG, INTRAVENOUS
     Route: 042
     Dates: start: 20040430, end: 20040722
  3. IFOSFAMIDE [Concomitant]
     Indication: LYMPHOMA
     Dosage: 2600 MG, INTRAVENOUS
     Route: 042
     Dates: start: 20040430, end: 20040722
  4. ETOPOSIDE [Suspect]
     Indication: LYMPHOMA
     Dosage: 170 MG, INTRAVENOUS
     Route: 042
     Dates: start: 20040430, end: 20040722
  5. CARBOPLATIN [Suspect]
     Indication: LYMPHOMA
     Dosage: 500 MG, INTRAVENOUS
     Route: 042
  6. HYDROCORTISONE SODIUM SUCCINATE [Concomitant]

REACTIONS (10)
  - ALANINE AMINOTRANSFERASE ABNORMAL [None]
  - BLOOD ALBUMIN DECREASED [None]
  - BLOOD SODIUM ABNORMAL [None]
  - EOSINOPHIL PERCENTAGE DECREASED [None]
  - HAEMOGLOBIN DECREASED [None]
  - LYMPHOCYTE PERCENTAGE INCREASED [None]
  - MONOCYTE PERCENTAGE DECREASED [None]
  - NEUTROPHIL PERCENTAGE DECREASED [None]
  - RED BLOOD CELL COUNT DECREASED [None]
  - WHITE BLOOD CELL COUNT DECREASED [None]
